FAERS Safety Report 4890986-3 (Version None)
Quarter: 2006Q1

REPORT INFORMATION
  Report Type: 
  Country: None (occurrence: None)
  Receive Date: 20060123
  Receipt Date: 20060103
  Transmission Date: 20060701
  Serious: Yes (Hospitalization, Other)
  Sender: FDA-Public Use
  Company Number: US_0507119863

PATIENT
  Age: 49 Year
  Sex: Female
  Weight: 125.6 kg

DRUGS (23)
  1. ZYPREXA [Suspect]
     Indication: PSYCHOTIC DISORDER
     Dosage: 5 MG, EACH EVENING,; 20 MG
     Dates: start: 20040602, end: 20040627
  2. TRICOR [Concomitant]
  3. PROTONIX [Concomitant]
  4. HYDROXYZINE PAMOATE [Concomitant]
  5. ALTACE [Concomitant]
  6. MIRTAZAPINE [Concomitant]
  7. DOXEPIN HCL [Concomitant]
  8. LIPITOR [Concomitant]
  9. DIAZEPAM [Concomitant]
  10. SEROQUEL/UNK/(QUETIAPIEN FUMARATE) [Concomitant]
  11. AMBEN (ZOLPIDEM TARTRATE) [Concomitant]
  12. AUGMENTIN/UNK/(AMOXICILLIN TRIHYDRATE, CLAVULANATE POTASSIUM) [Concomitant]
  13. CLONAZEPAM [Concomitant]
  14. FLUOXETINE HCL [Concomitant]
  15. IMIPRAMINE [Concomitant]
  16. PREMARIN [Concomitant]
  17. HALOPERIDOL [Concomitant]
  18. QUININE SULFATE (QUININE SULFATE UKNOWN FORMULATION) [Concomitant]
  19. EFFEXOR XR [Concomitant]
  20. DEPAKOTE - SLOW RELEASE (VALPROATE SEMISODIUM) [Concomitant]
  21. ABILIFY [Concomitant]
  22. INDERAL [Concomitant]
  23. ZOCOR [Concomitant]

REACTIONS (13)
  - CELLULITIS [None]
  - DEHYDRATION [None]
  - DIABETES MELLITUS [None]
  - DIABETIC ULCER [None]
  - DRY MOUTH [None]
  - FLANK PAIN [None]
  - NAUSEA [None]
  - NOCTURIA [None]
  - RENAL PAIN [None]
  - STOMACH DISCOMFORT [None]
  - URINARY TRACT INFECTION [None]
  - VOMITING [None]
  - WEIGHT INCREASED [None]
